FAERS Safety Report 10697209 (Version 2)
Quarter: 2015Q1

REPORT INFORMATION
  Report Type: Report from Study
  Country: NL (occurrence: NL)
  Receive Date: 20150108
  Receipt Date: 20150108
  Transmission Date: 20150721
  Serious: Yes (Other)
  Sender: FDA-Public Use
  Company Number: PHHY2014NL111993

PATIENT
  Age: 39 Year
  Sex: Female

DRUGS (3)
  1. SANDOSTATIN LAR DEPOT [Suspect]
     Active Substance: OCTREOTIDE ACETATE
     Indication: HYPOGLYCAEMIA
     Dosage: 1 DF (20 MG), ONCE EVERY 4 WEEKS
     Route: 030
     Dates: start: 20140709
  2. SANDOSTATIN LAR DEPOT [Suspect]
     Active Substance: OCTREOTIDE ACETATE
     Dosage: 1 DF (30 MG), ONCE EVERY 4 WEEKS
     Route: 030
     Dates: start: 20140903
  3. SANDOSTATIN LAR DEPOT [Suspect]
     Active Substance: OCTREOTIDE ACETATE
     Dosage: 1 DF (20 MG), ONCE EVERY 4 WEEKS
     Route: 030
     Dates: start: 20140806

REACTIONS (4)
  - Blood glucose fluctuation [Not Recovered/Not Resolved]
  - Product use issue [Unknown]
  - Vitamin E deficiency [Unknown]
  - Pyelonephritis [Unknown]

NARRATIVE: CASE EVENT DATE: 201410
